FAERS Safety Report 22351605 (Version 1)
Quarter: 2023Q2

REPORT INFORMATION
  Report Type: Spontaneous
  Country: CH (occurrence: CH)
  Receive Date: 20230522
  Receipt Date: 20230522
  Transmission Date: 20230722
  Serious: Yes (Other)
  Sender: FDA-Public Use
  Company Number: CH-APIL-2314854US

PATIENT
  Sex: Female

DRUGS (2)
  1. OZURDEX [Suspect]
     Active Substance: DEXAMETHASONE
     Indication: Macular oedema
     Dosage: 0.7 MG, SINGLE
     Route: 031
     Dates: start: 20220309, end: 20220309
  2. NIVOLUMAB [Suspect]
     Active Substance: NIVOLUMAB
     Indication: Product used for unknown indication

REACTIONS (2)
  - Off label use [Unknown]
  - Macular oedema [Not Recovered/Not Resolved]

NARRATIVE: CASE EVENT DATE: 20220501
